FAERS Safety Report 5601010-9 (Version None)
Quarter: 2008Q1

REPORT INFORMATION
  Report Type: 
  Country: None (occurrence: None)
  Receive Date: 20080124
  Receipt Date: 20080117
  Transmission Date: 20080703
  Serious: Yes (Death)
  Sender: FDA-Public Use
  Company Number: US-NOVOPROD-269318

PATIENT

DRUGS (3)
  1. NOVOSEVEN [Suspect]
     Indication: HAEMORRHAGE
     Dosage: 90 UG/KG, SINGLE
     Route: 042
     Dates: start: 20060608, end: 20060608
  2. HEPARIN [Concomitant]
     Dosage: 15000 U, UNK
     Route: 042
     Dates: start: 20060608
  3. HEPARIN [Concomitant]
     Dosage: 15000 UNK, UNK
     Dates: start: 20060608

REACTIONS (3)
  - AORTIC THROMBOSIS [None]
  - INTRACARDIAC THROMBUS [None]
  - THROMBOSIS IN DEVICE [None]
